FAERS Safety Report 6506788-8 (Version None)
Quarter: 2009Q4

REPORT INFORMATION
  Report Type: 
  Country: None (occurrence: None)
  Receive Date: 20091216
  Receipt Date: 20091204
  Transmission Date: 20100525
  Serious: Yes (Hospitalization)
  Sender: FDA-Public Use
  Company Number: 233805J09USA

PATIENT
  Age: 63 Year
  Sex: Female
  Weight: 73 kg

DRUGS (4)
  1. REBIF [Suspect]
     Indication: MULTIPLE SCLEROSIS
     Dosage: 44 MCG, 3 IN 1 WEEKS, SUBCUTANEOUS
     Route: 058
     Dates: start: 20070622
  2. DARVOCET [Concomitant]
  3. DIOVAN [Concomitant]
  4. PAXIL [Concomitant]

REACTIONS (3)
  - ABDOMINAL DISCOMFORT [None]
  - FATIGUE [None]
  - HAEMOGLOBIN DECREASED [None]
